FAERS Safety Report 21374654 (Version 1)
Quarter: 2022Q3

REPORT INFORMATION
  Report Type: Spontaneous
  Country: US (occurrence: US)
  Receive Date: 20220926
  Receipt Date: 20220926
  Transmission Date: 20221027
  Serious: Yes (Other)
  Sender: FDA-Public Use
  Company Number: US-ALLERGAN-2122748US

PATIENT
  Age: 67 Year
  Sex: Male

DRUGS (2)
  1. LEXAPRO [Suspect]
     Active Substance: ESCITALOPRAM OXALATE
     Indication: Anxiety
     Dosage: 5 MG 3 DAYS A WEEK
     Route: 048
     Dates: start: 202012
  2. LEXAPRO [Suspect]
     Active Substance: ESCITALOPRAM OXALATE
     Indication: Panic attack

REACTIONS (8)
  - Serotonin syndrome [Unknown]
  - Feeling jittery [Not Recovered/Not Resolved]
  - Off label use [Unknown]
  - Wrong technique in product usage process [Unknown]
  - Tremor [Not Recovered/Not Resolved]
  - Agitation [Not Recovered/Not Resolved]
  - Anxiety [Not Recovered/Not Resolved]
  - Drug ineffective [Unknown]

NARRATIVE: CASE EVENT DATE: 20201201
